FAERS Safety Report 14037612 (Version 1)
Quarter: 2017Q4

REPORT INFORMATION
  Report Type: Spontaneous
  Country: US (occurrence: US)
  Receive Date: 20171003
  Receipt Date: 20171003
  Transmission Date: 20180321
  Serious: No
  Sender: FDA-Public Use
  Company Number: None

PATIENT
  Sex: Female

DRUGS (1)
  1. ESTRADIOL TRANSDERMAL SYSTEM [Suspect]
     Active Substance: ESTRADIOL
     Dosage: ?          OTHER FREQUENCY:ONCE A WEEK;?
     Route: 062
     Dates: start: 20170919, end: 20171003

REACTIONS (2)
  - Product substitution issue [None]
  - Urticaria [None]
